FAERS Safety Report 25936314 (Version 3)
Quarter: 2025Q4

REPORT INFORMATION
  Report Type: Spontaneous
  Country: EU (occurrence: EU)
  Receive Date: 20251017
  Receipt Date: 20251112
  Transmission Date: 20260118
  Serious: Yes (Death, Life-Threatening, Hospitalization, Other)
  Sender: BRISTOL-MYERS SQUIBB COMPANY
  Company Number: None

PATIENT
  Age: 67 Year
  Sex: Female

DRUGS (31)
  1. BREYANZI [Suspect]
     Active Substance: LISOCABTAGENE MARALEUCEL
     Indication: Follicular lymphoma refractory
     Dosage: ONE ADMINISTRATION??BATCHES:?CD8+ CELL COMPONENT: 6W94-6WCP3F?CD4+ CELL COMPONENT: 6W94-6WCP3G
     Dates: start: 20250828, end: 20250828
  2. BREYANZI [Suspect]
     Active Substance: LISOCABTAGENE MARALEUCEL
     Dosage: CD4+ CELL COMPONENT
     Route: 042
     Dates: start: 20250828, end: 20250828
  3. POSACONAZOLE ZENTIVA [Concomitant]
     Indication: Antibiotic prophylaxis
     Dosage: 300 MG/DEN
     Route: 048
     Dates: start: 20250830, end: 20250923
  4. VALACYCLOVIR [Concomitant]
     Active Substance: VALACYCLOVIR HYDROCHLORIDE
     Indication: Prophylaxis
     Dosage: 500 MG EVERY 12 HOD
     Dates: start: 20250828, end: 20250923
  5. LEVOFLOXACIN [Concomitant]
     Active Substance: LEVOFLOXACIN
     Indication: Antibiotic prophylaxis
     Dosage: 500 MG A DAY
     Dates: start: 20250828, end: 20250911
  6. BISEPTOL [Concomitant]
     Active Substance: SULFAMETHOXAZOLE\TRIMETHOPRIM
     Indication: Antibiotic prophylaxis
     Dosage: 480 MG A DAY
     Dates: start: 20250828, end: 20251005
  7. PREGABALIN [Concomitant]
     Active Substance: PREGABALIN
     Indication: Depression
     Dosage: 75 MG/NIGHT
     Dates: start: 20250828, end: 20250904
  8. PURINOL [Concomitant]
     Indication: Prophylaxis
     Dosage: 100 MG EVERY 12 HOURS
     Dates: start: 20250828, end: 20250905
  9. PANTOPRAZOLE OLIKLA [Concomitant]
     Indication: Prophylaxis
     Dosage: DNY 1-7 20 MG/DEN, POTE 40 MG PO 12 HODINACH
     Route: 042
     Dates: start: 20250828, end: 20251006
  10. EUTHYROX [Concomitant]
     Active Substance: LEVOTHYROXINE SODIUM
     Indication: Hypothyroidism
     Dosage: 1 TABLET/DAY, LONG-TERM MEDICATION
     Route: 048
  11. EUTHYROX [Concomitant]
     Active Substance: LEVOTHYROXINE SODIUM
     Dosage: 1 TBL/DAY
     Route: 048
  12. TRAZODONE HYDROCHLORIDE [Concomitant]
     Active Substance: TRAZODONE HYDROCHLORIDE
     Indication: Depression
     Dosage: 150 MG/NIGHT - LONG-TERM MEDICATION
     Dates: start: 20250828, end: 20250923
  13. FLUDARABINE [Concomitant]
     Active Substance: FLUDARABINE PHOSPHATE
     Indication: Follicular lymphoma
  14. CYCLOPHOSPHAMIDE [Concomitant]
     Active Substance: CYCLOPHOSPHAMIDE
     Indication: Follicular lymphoma
  15. AVIBACTAM SODIUM\CEFTAZIDIME [Concomitant]
     Active Substance: AVIBACTAM SODIUM\CEFTAZIDIME
     Indication: Infection
     Dosage: AFTER 8 HOURS
     Route: 042
     Dates: start: 20250912, end: 20251003
  16. MEROPENEM APTAPHARMA [Concomitant]
     Indication: Infection
     Route: 042
     Dates: start: 20250902, end: 20250909
  17. PROPOFOL [Concomitant]
     Active Substance: PROPOFOL
     Indication: Sedation
     Dosage: CONTINUOUSLY - TITRATED ACCORDING TO THE PATIENT^S CONDITION.
     Route: 042
     Dates: start: 20250926, end: 20251006
  18. SUFENTANIL TORREX [Concomitant]
     Indication: Pain management
     Dosage: CONTINUOUSLY - TITRATED ACCORDING TO THE PATIENT^S CONDITION.
     Route: 042
     Dates: start: 20250909, end: 20251006
  19. SUFENTANIL TORREX [Concomitant]
     Indication: Analgosedation
  20. TYGACIL [Concomitant]
     Active Substance: TIGECYCLINE
     Indication: Product used for unknown indication
     Dosage: AFTER 12 HOURS
     Route: 042
     Dates: start: 20250927, end: 20251006
  21. METRONIDAZOLE [Concomitant]
     Active Substance: METRONIDAZOLE
     Indication: Infection
     Dosage: AFTER 8 HOURS
     Route: 042
     Dates: start: 20250903, end: 20250905
  22. FOMICYT [Concomitant]
     Indication: Infection
     Dosage: AFTER 8 HOURS
     Route: 042
     Dates: start: 20250927, end: 20251006
  23. NOXAFIL [Concomitant]
     Active Substance: POSACONAZOLE
     Indication: Infection prophylaxis
     Dates: start: 20250924, end: 20251005
  24. INFLIXIMAB [Concomitant]
     Active Substance: INFLIXIMAB
     Indication: Infection prophylaxis
     Route: 048
     Dates: start: 20250830, end: 20250923
  25. ACICLOVIR OLIKLA [Concomitant]
     Indication: Infection prophylaxis
     Dosage: AFTER 12 HOURS
     Route: 042
     Dates: start: 20250924, end: 20251005
  26. NORADRENALIN LECIVA [Concomitant]
     Indication: Hypotension
     Dosage: CONTINUOUSLY - TITRATED ACCORDING TO THE PATIEN^S CONDITION
     Route: 042
     Dates: start: 20250906, end: 20251006
  27. URSODIOL [Concomitant]
     Active Substance: URSODIOL
     Indication: Cholestasis
     Dosage: DOSE:  1 CAPSULE 3X PER DAY
     Route: 048
     Dates: start: 20250906, end: 20250925
  28. TYENNE [Concomitant]
     Active Substance: TOCILIZUMAB-AAZG
     Indication: Cytokine release syndrome
     Dosage: ONE TIME
     Route: 042
     Dates: start: 20250903, end: 20250903
  29. DEXAMED [BENZETHONIUM CHLORIDE;CETYLPYRIDINIUM CHLORIDE;DEXAMETHASONE; [Concomitant]
     Indication: Cytokine release syndrome
     Dosage: AFTER 6 HOURS
     Route: 042
     Dates: start: 20250902, end: 20250909
  30. CYCLOPHOSPHAMIDE [Concomitant]
     Active Substance: CYCLOPHOSPHAMIDE
     Indication: Lymphodepletion
     Dosage: DOSE: 517 MG/D (300 MG/M2/D)
     Dates: start: 20250823, end: 20250825
  31. FLUDARABINE [Concomitant]
     Active Substance: FLUDARABINE PHOSPHATE
     Indication: Lymphodepletion
     Dosage: DOSE: 52 MG/D (30 MG/M2/D)
     Dates: start: 20250823, end: 20250825

REACTIONS (20)
  - Jaundice cholestatic [Fatal]
  - Cholestasis [Fatal]
  - Coagulopathy [Fatal]
  - Multiple organ dysfunction syndrome [Fatal]
  - Enterocolitis haemorrhagic [Fatal]
  - Abdominal compartment syndrome [Fatal]
  - Renal failure [Fatal]
  - Respiratory failure [Fatal]
  - Metabolic acidosis [Fatal]
  - Ileus paralytic [Fatal]
  - Pain [Fatal]
  - Fatigue [Fatal]
  - Immune-mediated pancytopenia [Fatal]
  - Capillary leak syndrome [Fatal]
  - Systemic inflammatory response syndrome [Fatal]
  - Immune effector cell-associated haematotoxicity [Fatal]
  - Colitis [Fatal]
  - Cytokine release syndrome [Recovered/Resolved]
  - Haemophagocytic lymphohistiocytosis [Unknown]
  - Septic shock [Unknown]

NARRATIVE: CASE EVENT DATE: 20250101
